FAERS Safety Report 16959944 (Version 1)
Quarter: 2019Q4

REPORT INFORMATION
  Report Type: Report from Study
  Country: US (occurrence: US)
  Receive Date: 20191025
  Receipt Date: 20191025
  Transmission Date: 20200122
  Serious: Yes (Hospitalization, Other)
  Sender: FDA-Public Use
  Company Number: US-GILEAD-2019-0434441

PATIENT
  Age: 50 Year
  Sex: Female

DRUGS (9)
  1. ASPIRIN [ACETYLSALICYLIC ACID;ASCORBIC ACID] [Concomitant]
     Active Substance: ACETAMINOPHEN\ASCORBIC ACID
  2. FLUTICASONE. [Concomitant]
     Active Substance: FLUTICASONE
  3. ATORVASTATIN [Concomitant]
     Active Substance: ATORVASTATIN
  4. TADALAFIL. [Concomitant]
     Active Substance: TADALAFIL
  5. BACLOFEN. [Concomitant]
     Active Substance: BACLOFEN
  6. LIPITOR [Concomitant]
     Active Substance: ATORVASTATIN CALCIUM
  7. DHA [Concomitant]
     Active Substance: DIETARY SUPPLEMENT
  8. AMBRISENTAN [Suspect]
     Active Substance: AMBRISENTAN
     Indication: PULMONARY ARTERIAL HYPERTENSION
     Dosage: 10 MG, QD
     Route: 065
     Dates: start: 20170509
  9. LEVAQUIN [Concomitant]
     Active Substance: LEVOFLOXACIN

REACTIONS (3)
  - Intentional dose omission [Not Recovered/Not Resolved]
  - Transient ischaemic attack [Unknown]
  - Transient ischaemic attack [Recovered/Resolved]

NARRATIVE: CASE EVENT DATE: 2018
